FAERS Safety Report 5048697-X (Version None)
Quarter: 2006Q3

REPORT INFORMATION
  Report Type: 
  Country: None (occurrence: None)
  Receive Date: 20060712
  Receipt Date: 20060630
  Transmission Date: 20061208
  Serious: Yes (Other)
  Sender: FDA-Public Use
  Company Number: 2006GB01128

PATIENT
  Sex: Female

DRUGS (3)
  1. LOSEC [Suspect]
     Indication: GASTROOESOPHAGEAL REFLUX DISEASE
     Route: 048
     Dates: start: 20031201, end: 20060501
  2. PHENYTOIN SODIUM CAP [Concomitant]
     Indication: EPILEPSY
     Route: 048
  3. TEMAZEPAM [Concomitant]
     Route: 048

REACTIONS (4)
  - CONJUNCTIVAL HAEMORRHAGE [None]
  - LIVER FUNCTION TEST ABNORMAL [None]
  - OEDEMA PERIPHERAL [None]
  - URTICARIA [None]
